FAERS Safety Report 4989727-0 (Version None)
Quarter: 2006Q2

REPORT INFORMATION
  Report Type: 
  Country: None (occurrence: None)
  Receive Date: 20060428
  Receipt Date: 20060419
  Transmission Date: 20061013
  Serious: Yes (Other)
  Sender: FDA-Public Use
  Company Number: HQWYE830204AUG04

PATIENT
  Age: 61 Year
  Sex: Female
  Weight: 64.92 kg

DRUGS (4)
  1. PREMPRO [Suspect]
     Dosage: 0.625 MG/2.5MG DAILY, ORAL
     Route: 048
     Dates: start: 19950101, end: 20011101
  2. MEDROXYPROGESTERONE [Suspect]
     Dosage: UNKNONW, ORAL
     Route: 048
     Dates: start: 19940101, end: 19950101
  3. PREMARIN [Suspect]
     Dosage: 0.625MG DAILY, ORAL
     Route: 048
     Dates: start: 19911119, end: 20020701
  4. PROVERA [Suspect]
     Dosage: 5 MG 1X PER 1 DAY, ORAL
     Route: 048
     Dates: start: 19911101, end: 19950101

REACTIONS (5)
  - BLADDER CANCER RECURRENT [None]
  - BREAST CANCER METASTATIC [None]
  - METASTASES TO LYMPH NODES [None]
  - OESTROGEN RECEPTOR ASSAY POSITIVE [None]
  - PROGESTERONE RECEPTOR ASSAY POSITIVE [None]
